FAERS Safety Report 4504230-X (Version None)
Quarter: 2004Q4

REPORT INFORMATION
  Report Type: 
  Country: None (occurrence: None)
  Receive Date: 20041116
  Receipt Date: 20041104
  Transmission Date: 20050328
  Serious: Yes (Death)
  Sender: FDA-Public Use
  Company Number: SA20041194

PATIENT
  Sex: Female

DRUGS (1)
  1. ACCUZYME OINTMENT (PAPAIN, UREA) [Suspect]
     Indication: WOUND INFECTION
     Dosage: DAILY TOPICAL
     Route: 061
     Dates: start: 20021008, end: 20021027

REACTIONS (2)
  - ARTERIAL RUPTURE [None]
  - HAEMORRHAGE [None]
